FAERS Safety Report 13913829 (Version 1)
Quarter: 2017Q3

REPORT INFORMATION
  Report Type: Spontaneous
  Country: US (occurrence: US)
  Receive Date: 20170828
  Receipt Date: 20170828
  Transmission Date: 20171127
  Serious: No
  Sender: FDA-Public Use
  Company Number: US-ROCHE-1140355

PATIENT
  Sex: Male
  Weight: 32.5 kg

DRUGS (2)
  1. NUTROPIN AQ [Suspect]
     Active Substance: SOMATROPIN
     Indication: GROWTH HORMONE DEFICIENCY
     Route: 058
  2. PROTROPIN [Concomitant]
     Active Substance: SOMATREM
     Dosage: 5MG/0.5
     Route: 065

REACTIONS (1)
  - Abdominal pain [Unknown]
